FAERS Safety Report 9403015 (Version 2)
Quarter: 2014Q1

REPORT INFORMATION
  Report Type: Spontaneous
  Country: US (occurrence: US)
  Receive Date: 20130716
  Receipt Date: 20140305
  Transmission Date: 20141002
  Serious: Yes (Other)
  Sender: FDA-Public Use
  Company Number: US-TEVA-418118USA

PATIENT
  Sex: Male

DRUGS (2)
  1. COPAXONE [Suspect]
     Indication: MULTIPLE SCLEROSIS
     Dosage: 8.5714 MILLIGRAM DAILY;
  2. INSULIN [Concomitant]

REACTIONS (2)
  - Central nervous system lesion [Unknown]
  - Muscular weakness [Unknown]
